FAERS Safety Report 8845182 (Version 1)
Quarter: 2012Q4

REPORT INFORMATION
  Report Type: 
  Country: US (occurrence: US)
  Receive Date: 20121017
  Receipt Date: 20121017
  Transmission Date: 20130627
  Serious: No
  Sender: FDA-Public Use
  Company Number: US-009507513-1210USA002668

PATIENT

DRUGS (2)
  1. PEGINTRON [Suspect]
     Route: 065
  2. REBETOL [Suspect]
     Route: 048

REACTIONS (1)
  - Disease recurrence [Unknown]
